FAERS Safety Report 8358470-2 (Version None)
Quarter: 2012Q2

REPORT INFORMATION
  Report Type: 
  Country: None (occurrence: None)
  Receive Date: 20120514
  Receipt Date: 20110824
  Transmission Date: 20120825
  Serious: No
  Sender: FDA-Public Use
  Company Number: US-TEVA-2011004452

PATIENT
  Sex: Female
  Weight: 113.5 kg

DRUGS (5)
  1. NEXIUM [Concomitant]
     Dates: start: 20110201
  2. MULTI-VITAMIN [Concomitant]
  3. CELEBREX [Concomitant]
     Dates: start: 20110201
  4. NUVIGIL [Suspect]
     Indication: CIRCADIAN RHYTHM SLEEP DISORDER
     Dosage: 150 MILLIGRAM;
     Route: 048
     Dates: start: 20110801, end: 20110801
  5. NUVIGIL [Suspect]
     Dosage: 250 MILLIGRAM;
     Route: 048
     Dates: start: 20110801

REACTIONS (1)
  - DRUG TOLERANCE [None]
